FAERS Safety Report 12805307 (Version 6)
Quarter: 2017Q2

REPORT INFORMATION
  Report Type: Report from Study
  Country: US (occurrence: US)
  Receive Date: 20161004
  Receipt Date: 20170622
  Transmission Date: 20170830
  Serious: Yes (Hospitalization, Other)
  Sender: FDA-Public Use
  Company Number: US-AMGEN-USASL2016129616

PATIENT
  Age: 63 Year
  Sex: Male

DRUGS (6)
  1. HYDROXYCHLOROQUINE [Concomitant]
     Active Substance: HYDROXYCHLOROQUINE
     Dosage: 200 MG TABLETS 2 TIMES A DAY
  2. ENBREL [Suspect]
     Active Substance: ETANERCEPT
     Indication: RHEUMATOID ARTHRITIS
     Dosage: 50 MG, QWK (TUESDAYS)
     Route: 065
     Dates: start: 20160816
  3. ELIQUIS [Concomitant]
     Active Substance: APIXABAN
     Dosage: 2.5 MG, 2 TIMES A DAY
     Route: 065
  4. LEVAQUIN [Concomitant]
     Active Substance: LEVOFLOXACIN
     Dosage: UNK
  5. METHOTREXATE. [Concomitant]
     Active Substance: METHOTREXATE
     Dosage: 4 TIMES A WEEK, A 2.5 MG TABLET
  6. RAYOS [Concomitant]
     Active Substance: PREDNISONE
     Dosage: UNK

REACTIONS (15)
  - Drug ineffective [Unknown]
  - Joint effusion [Unknown]
  - Meniscus injury [Unknown]
  - Myalgia [Unknown]
  - Tremor [Unknown]
  - Joint crepitation [Unknown]
  - Arthritis [Not Recovered/Not Resolved]
  - Rheumatoid arthritis [Unknown]
  - Procedural pain [Unknown]
  - Arthropathy [Unknown]
  - Blood pressure decreased [Unknown]
  - Injection site pain [Unknown]
  - Insomnia [Unknown]
  - Mobility decreased [Unknown]
  - Peripheral swelling [Unknown]

NARRATIVE: CASE EVENT DATE: 2016
